FAERS Safety Report 10172757 (Version 4)
Quarter: 2014Q2

REPORT INFORMATION
  Report Type: Report from Study
  Country: CA (occurrence: CA)
  Receive Date: 20140515
  Receipt Date: 20140602
  Transmission Date: 20141212
  Serious: Yes (Death, Hospitalization)
  Sender: FDA-Public Use
  Company Number: CA-ROCHE-1398211

PATIENT
  Age: 59 Year
  Sex: Male

DRUGS (10)
  1. AVASTIN [Suspect]
     Indication: GLIOBLASTOMA
     Route: 042
     Dates: start: 20140429, end: 20140429
  2. ATORVASTATIN [Concomitant]
  3. PROCHLORAZINE [Concomitant]
  4. PANTOPRAZOLE [Concomitant]
  5. LEVETIRACETAM [Concomitant]
  6. CIPRALEX [Concomitant]
  7. ZOFRAN [Concomitant]
  8. FRAGMIN [Concomitant]
     Dosage: DAILY
     Route: 065
  9. DOCUSATE [Concomitant]
  10. TRAZODONE [Concomitant]

REACTIONS (5)
  - Disease progression [Fatal]
  - Convulsion [Unknown]
  - Nasopharyngitis [Unknown]
  - Haematochezia [Unknown]
  - Arthralgia [Recovering/Resolving]
